FAERS Safety Report 6721453-X (Version None)
Quarter: 2010Q2

REPORT INFORMATION
  Report Type: 
  Country: None (occurrence: None)
  Receive Date: 20100510
  Receipt Date: 20100505
  Transmission Date: 20101027
  Serious: Yes (Other)
  Sender: FDA-Public Use
  Company Number: 2010SP016296

PATIENT
  Age: 41 Year
  Sex: Female
  Weight: 94 kg

DRUGS (5)
  1. IMPLANON [Suspect]
     Indication: DRUG USE FOR UNKNOWN INDICATION
     Dosage: 1 DF; ;SC
     Route: 058
     Dates: start: 20080123, end: 20100222
  2. EUTHYRAL [Concomitant]
  3. ANAFRANIL [Concomitant]
  4. TERCIAN [Concomitant]
  5. JANUMET [Concomitant]

REACTIONS (3)
  - ABORTION SPONTANEOUS [None]
  - DRUG EXPOSURE DURING PREGNANCY [None]
  - PREGNANCY WITH IMPLANT CONTRACEPTIVE [None]
